FAERS Safety Report 21381738 (Version 1)
Quarter: 2022Q3

REPORT INFORMATION
  Report Type: Spontaneous
  Country: IL (occurrence: IL)
  Receive Date: 20220927
  Receipt Date: 20220927
  Transmission Date: 20221026
  Serious: Yes (Hospitalization, Other)
  Sender: FDA-Public Use
  Company Number: IL-CELGENE-ISR-20220302060

PATIENT
  Age: 75 Year
  Sex: Male
  Weight: 83 kg

DRUGS (31)
  1. AZACITIDINE [Suspect]
     Active Substance: AZACITIDINE
     Indication: Myelodysplastic syndrome
     Dosage: ON 7 DAYS OF THE FIRST 9 CALENDAR DAYS PER 28 DAY CYCLE
     Route: 042
     Dates: start: 20211010, end: 20220207
  2. AZACITIDINE [Suspect]
     Active Substance: AZACITIDINE
     Dosage: ON 7 DAYS OF THE FIRST 9 CALENDAR DAYS PER 28 DAY CYCLE
     Route: 042
  3. AZACITIDINE [Suspect]
     Active Substance: AZACITIDINE
     Dosage: 47 MG 7 DAYS      WITHIN THE FIRST 9 CALENDAR DAYS OF EACH 28-DAY CYCLE
     Route: 042
  4. AZACITIDINE [Suspect]
     Active Substance: AZACITIDINE
     Dosage: 7 DAYS WITHIN THE FIRST 9 CALENDAR      DAYS OF EACH 28-DAY CYCLE
     Route: 042
  5. AZACITIDINE [Suspect]
     Active Substance: AZACITIDINE
     Route: 042
     Dates: start: 20211010, end: 20220207
  6. AZACITIDINE [Suspect]
     Active Substance: AZACITIDINE
     Route: 042
     Dates: start: 20220306, end: 20220314
  7. AZACITIDINE [Suspect]
     Active Substance: AZACITIDINE
     Dosage: 120 DAYS; 9 DAYS
     Route: 042
     Dates: start: 20220410
  8. VENETOCLAX [Suspect]
     Active Substance: VENETOCLAX
     Indication: Myelodysplastic syndrome
     Dosage: DAYS 1-14 OF EACH 28 DAY CYCLE
     Route: 048
     Dates: start: 20211010, end: 20211218
  9. VENETOCLAX [Suspect]
     Active Substance: VENETOCLAX
     Route: 048
     Dates: start: 20220102, end: 20220205
  10. VENETOCLAX [Suspect]
     Active Substance: VENETOCLAX
     Dosage: 7 DAYS ON, 21 DAYS OFF, EVERY 1 (
     Route: 048
     Dates: start: 20220306, end: 20220312
  11. VENETOCLAX [Suspect]
     Active Substance: VENETOCLAX
     Route: 065
     Dates: start: 20220410
  12. ARANESP [Concomitant]
     Active Substance: DARBEPOETIN ALFA
     Indication: Anaemia
     Route: 058
     Dates: start: 20211010
  13. ARANESP [Concomitant]
     Active Substance: DARBEPOETIN ALFA
     Dosage: FREQUENCY TEXT: NOT PROVIDED
     Route: 058
  14. CRESTOR [Concomitant]
     Active Substance: ROSUVASTATIN CALCIUM
     Indication: Hyperlipidaemia
     Route: 048
     Dates: start: 1996
  15. CRESTOR [Concomitant]
     Active Substance: ROSUVASTATIN CALCIUM
     Dosage: FREQUENCY TEXT: NOT PROVIDED
     Route: 048
  16. NEXIUM [Concomitant]
     Active Substance: ESOMEPRAZOLE MAGNESIUM
     Indication: Prophylaxis
     Dosage: 1 IN 1 D
     Route: 048
     Dates: start: 2000
  17. VITAMIN D [Concomitant]
     Active Substance: VITAMIN D NOS
     Indication: Vitamin D deficiency
     Dosage: 1 IN 1 D
     Route: 048
     Dates: start: 2019
  18. EZETIMIBE [Concomitant]
     Active Substance: EZETIMIBE
     Indication: Hyperlipidaemia
     Dosage: 1 IN 1 D
     Route: 048
     Dates: start: 1996
  19. EZETIMIBE [Concomitant]
     Active Substance: EZETIMIBE
     Dosage: 10 MILLIGRAM
     Route: 048
     Dates: start: 1996
  20. PRAMIN [Concomitant]
     Indication: Nausea
     Dosage: 1 AS REQUIRED
     Route: 048
     Dates: start: 20211012
  21. BISOPROLOL FUMARATE [Concomitant]
     Active Substance: BISOPROLOL FUMARATE
     Indication: Hypertension
     Dosage: 1 IN 1 D
     Route: 048
     Dates: start: 20211012
  22. BISOPROLOL FUMARATE [Concomitant]
     Active Substance: BISOPROLOL FUMARATE
     Dosage: 5 MILLIGRAM
     Route: 048
     Dates: start: 20211012
  23. ASPIRIN [Concomitant]
     Active Substance: ASPIRIN
     Indication: Thrombosis prophylaxis
     Dosage: 1 IN 1 D
     Route: 048
     Dates: start: 20211012
  24. ASPIRIN [Concomitant]
     Active Substance: ASPIRIN
     Dosage: 75 MILLIGRAM
     Route: 048
     Dates: start: 20211012
  25. ZOFRAN [Concomitant]
     Active Substance: ONDANSETRON HYDROCHLORIDE
     Indication: Prophylaxis of nausea and vomiting
     Dosage: 1 AS REQUIRED
     Route: 048
     Dates: start: 20211012
  26. OXAZEPAM [Concomitant]
     Active Substance: OXAZEPAM
     Indication: Hypotonia
     Dosage: 1 IN 1 D
     Route: 048
     Dates: start: 20211226
  27. DESFERAL [Concomitant]
     Active Substance: DEFEROXAMINE MESYLATE
     Indication: Serum ferritin increased
     Dosage: 2 MILLIGRAM
     Route: 048
     Dates: start: 20211219
  28. COVID-19 VACCINE [Concomitant]
     Indication: Product used for unknown indication
     Route: 065
     Dates: start: 20201222, end: 20201222
  29. COVID-19 VACCINE [Concomitant]
     Route: 065
     Dates: start: 20210112, end: 20210112
  30. COVID-19 VACCINE [Concomitant]
     Route: 065
     Dates: start: 20210627, end: 20210627
  31. COVID-19 VACCINE [Concomitant]
     Route: 065
     Dates: start: 20220117, end: 20220117

REACTIONS (3)
  - Febrile neutropenia [Recovered/Resolved]
  - Vitreous haemorrhage [Recovered/Resolved]
  - Retinal tear [Recovered/Resolved]

NARRATIVE: CASE EVENT DATE: 20220227
